FAERS Safety Report 9458209 (Version 1)
Quarter: 2013Q3

REPORT INFORMATION
  Report Type: Spontaneous
  Country: BR (occurrence: None)
  Receive Date: 20130812
  Receipt Date: 20130812
  Transmission Date: 20140515
  Serious: Yes (Other)
  Sender: FDA-Public Use
  Company Number: DSU-2013-04168

PATIENT
  Age: 56 Year
  Sex: Female

DRUGS (5)
  1. OLMETEC [Suspect]
     Indication: HYPERTENSION
     Route: 048
     Dates: start: 20060725
  2. ATENOLOL (AENOLOL) [Concomitant]
  3. ABLOK PLUS (CHLORTALIDONE, ATENOLOL) (CHLORTALIDONE, ATENOLOL) [Concomitant]
  4. ABLOK PLUS (CHLORTALIDONE, ATENOLOL) (CHLORTALIDONE, ATENOLOL) [Concomitant]
  5. OLCADIL (CLOXAZOLAM) (CLOXAZOLAM) [Concomitant]

REACTIONS (4)
  - Blood pressure increased [None]
  - Cerebral ischaemia [None]
  - Blindness unilateral [None]
  - Emotional disorder [None]
